FAERS Safety Report 6129771-3 (Version None)
Quarter: 2009Q1

REPORT INFORMATION
  Report Type: 
  Country: None (occurrence: None)
  Receive Date: 20090323
  Receipt Date: 20090323
  Transmission Date: 20090719
  Serious: No
  Sender: FDA-Public Use
  Company Number: None

PATIENT
  Age: 24 Year
  Sex: Female
  Weight: 52.1637 kg

DRUGS (1)
  1. MIRENA [Suspect]

REACTIONS (1)
  - MUSCLE SPASMS [None]
